FAERS Safety Report 6576962-3 (Version None)
Quarter: 2010Q1

REPORT INFORMATION
  Report Type: 
  Country: None (occurrence: None)
  Receive Date: 20100210
  Receipt Date: 20100203
  Transmission Date: 20100710
  Serious: Yes (Other)
  Sender: FDA-Public Use
  Company Number: JP-PFIZER INC-2010009833

PATIENT
  Sex: Male

DRUGS (3)
  1. XALATAN [Suspect]
     Dosage: UNK
     Route: 047
  2. CARNACULIN [Suspect]
     Route: 048
  3. CARPRONIUM CHLORIDE [Suspect]

REACTIONS (2)
  - EYELID OEDEMA [None]
  - INTESTINAL HAEMORRHAGE [None]
